FAERS Safety Report 6340927-7 (Version None)
Quarter: 2009Q3

REPORT INFORMATION
  Report Type: 
  Country: None (occurrence: None)
  Receive Date: 20090902
  Receipt Date: 20090902
  Transmission Date: 20100115
  Serious: No
  Sender: FDA-Public Use
  Company Number: None

PATIENT
  Sex: Female
  Weight: 64.09 kg

DRUGS (3)
  1. CISPLATIN [Suspect]
     Dosage: 86 MG
  2. DOXORUBICIN HCL [Suspect]
     Dosage: 51 MG
  3. TAXOL [Suspect]
     Dosage: 128 MG

REACTIONS (1)
  - NEUTROPHIL COUNT DECREASED [None]
